FAERS Safety Report 6252671-5 (Version None)
Quarter: 2009Q3

REPORT INFORMATION
  Report Type: 
  Country: None (occurrence: None)
  Receive Date: 20090701
  Receipt Date: 20090619
  Transmission Date: 20100115
  Serious: Yes (Other)
  Sender: FDA-Public Use
  Company Number: PHHY2009JP17908

PATIENT
  Sex: Female
  Weight: 34 kg

DRUGS (4)
  1. COMTAN [Suspect]
     Indication: PARKINSON'S DISEASE
     Dosage: 100 MG, QD
     Route: 048
     Dates: start: 20090313, end: 20090402
  2. CARBIDOPA AND LEVODOPA [Concomitant]
     Indication: PARKINSON'S DISEASE
     Dosage: 400 MG, UNK
     Route: 048
     Dates: start: 20031003
  3. CABASER [Concomitant]
     Indication: PARKINSON'S DISEASE
     Dosage: 0.5 MG, UNK
     Route: 048
     Dates: start: 20021001
  4. CABASER [Concomitant]
     Dosage: 1 MG, UNK
     Route: 048

REACTIONS (2)
  - BLOOD PRESSURE INCREASED [None]
  - CHEST DISCOMFORT [None]
